FAERS Safety Report 5471208-1 (Version None)
Quarter: 2007Q3

REPORT INFORMATION
  Report Type: 
  Country: None (occurrence: None)
  Receive Date: 20070928
  Receipt Date: 20070720
  Transmission Date: 20080115
  Serious: No
  Sender: FDA-Public Use
  Company Number: A0665388A

PATIENT
  Age: 80 Year
  Sex: Female

DRUGS (4)
  1. FLOVENT [Suspect]
     Indication: DRUG USE FOR UNKNOWN INDICATION
     Dosage: 2PUFF TWICE PER DAY
     Route: 055
  2. SPIRIVA [Concomitant]
  3. VENTOLIN HFA [Concomitant]
  4. UNKNOWN MEDICATION [Concomitant]
     Indication: BLOOD CHOLESTEROL INCREASED

REACTIONS (2)
  - DYSPNOEA [None]
  - PHARMACEUTICAL PRODUCT COMPLAINT [None]
